FAERS Safety Report 5866036-9 (Version None)
Quarter: 2008Q3

REPORT INFORMATION
  Report Type: 
  Country: None (occurrence: None)
  Receive Date: 20080829
  Receipt Date: 20080825
  Transmission Date: 20090109
  Serious: Yes (Other)
  Sender: FDA-Public Use
  Company Number: IT-BOEHRINGER INGELHEIM GMBH, GERMANY-2008-BP-13321RO

PATIENT
  Age: 40 Year
  Sex: Male

DRUGS (9)
  1. DEXAMETHASONE TAB [Suspect]
     Indication: CENTRAL NERVOUS SYSTEM LESION
  2. DEXAMETHASONE TAB [Suspect]
     Indication: BRAIN OEDEMA
  3. PYRIMETHAMINE TAB [Suspect]
     Indication: TOXOPLASMOSIS
  4. SULFADIAZINE [Suspect]
     Indication: TOXOPLASMOSIS
  5. TENOFOVIR/EMTRICITABINE [Suspect]
     Indication: ANTIRETROVIRAL THERAPY
  6. LOPINAVIR AND RITONAVIR [Suspect]
     Indication: ANTIRETROVIRAL THERAPY
  7. BIPHOSPHONATE [Concomitant]
     Indication: BONE DENSITY DECREASED
  8. CALCIUM [Concomitant]
     Indication: BONE DENSITY DECREASED
  9. NON NUCLEOSIDE PROTEASE INHIBITOR [Concomitant]
     Indication: DRUG TOXICITY

REACTIONS (3)
  - BONE DENSITY DECREASED [None]
  - DRUG TOXICITY [None]
  - SPINAL FRACTURE [None]
